FAERS Safety Report 9042345 (Version 1)
Quarter: 2013Q1

REPORT INFORMATION
  Report Type: Report from Study
  Country: US (occurrence: US)
  Receive Date: 20130129
  Receipt Date: 20130129
  Transmission Date: 20140127
  Serious: No
  Sender: FDA-Public Use
  Company Number: US-ABBOTT-12P-163-0909113-00

PATIENT
  Age: 52 Year
  Sex: Female

DRUGS (13)
  1. HUMIRA 40 MG/0.8 ML PEN [Suspect]
     Indication: CROHN^S DISEASE
     Route: 058
     Dates: start: 20120128, end: 20120128
  2. HUMIRA 40 MG/0.8 ML PEN [Suspect]
     Route: 058
     Dates: start: 20120211, end: 20120211
  3. HUMIRA 40 MG/0.8 ML PEN [Suspect]
     Route: 058
     Dates: start: 20120225
  4. ESTRADIOL [Concomitant]
     Indication: HORMONE REPLACEMENT THERAPY
  5. CYCLOBENZAPRINE [Concomitant]
     Indication: MYALGIA
  6. WELLBUTRIN [Concomitant]
     Indication: SPINAL PAIN
  7. MOBIC [Concomitant]
     Indication: CROHN^S DISEASE
  8. FLONASE [Concomitant]
     Indication: HYPERSENSITIVITY
  9. OMEPRAZOLE [Concomitant]
     Indication: GASTROOESOPHAGEAL REFLUX DISEASE
  10. CHLORTHALIDONE [Concomitant]
     Indication: HYPERTENSION
  11. MAGNESIUM [Concomitant]
     Indication: VITAMIN SUPPLEMENTATION
  12. POTASSIUM [Concomitant]
     Indication: VITAMIN SUPPLEMENTATION
  13. MULTIVITAMIN [Concomitant]
     Indication: PRODUCT USED FOR UNKNOWN INDICATION

REACTIONS (3)
  - Injection site bruising [Not Recovered/Not Resolved]
  - Injection site pruritus [Unknown]
  - Injection site erythema [Unknown]
